FAERS Safety Report 17334746 (Version 2)
Quarter: 2023Q2

REPORT INFORMATION
  Report Type: Spontaneous
  Country: US (occurrence: US)
  Receive Date: 20200128
  Receipt Date: 20230518
  Transmission Date: 20230721
  Serious: Yes (Other)
  Sender: FDA-Public Use
  Company Number: US-JNJFOC-20200143171

PATIENT
  Age: 19 Year
  Sex: Male

DRUGS (2)
  1. RISPERDAL [Suspect]
     Active Substance: RISPERIDONE
     Indication: Product used for unknown indication
     Route: 048
  2. RISPERDAL [Suspect]
     Active Substance: RISPERIDONE
     Dosage: VARYING (DOSES OF 0.25, 0.5, 1,  AND 2 MG AND FREQUENCIES OF TWICE DAILY, AT BEDTIME AND IN MORNING)
     Route: 048
     Dates: start: 2004, end: 2008

REACTIONS (4)
  - Gynaecomastia [Unknown]
  - Emotional disorder [Unknown]
  - Mood swings [Unknown]
  - Sedation [Unknown]

NARRATIVE: CASE EVENT DATE: 20071201
